FAERS Safety Report 6787094-3 (Version None)
Quarter: 2010Q2

REPORT INFORMATION
  Report Type: 
  Country: None (occurrence: None)
  Receive Date: 20100623
  Receipt Date: 20100615
  Transmission Date: 20101027
  Serious: Yes (Hospitalization)
  Sender: FDA-Public Use
  Company Number: PHHO2010KR09045

PATIENT
  Sex: Female
  Weight: 45.2 kg

DRUGS (5)
  1. EXELON [Suspect]
     Indication: DEMENTIA ALZHEIMER'S TYPE
     Dosage: 4.6 MG
     Route: 062
     Dates: start: 20100528, end: 20100530
  2. ARICEPT [Suspect]
     Indication: DEMENTIA ALZHEIMER'S TYPE
     Dosage: 10 MG / DAY
     Dates: start: 20100209, end: 20100606
  3. ARIPIPRAZOLE [Concomitant]
  4. QUETIAPINE FUMARATE [Concomitant]
  5. PAROXETINE HCL [Concomitant]

REACTIONS (2)
  - MYOCLONUS [None]
  - TREMOR [None]
